FAERS Safety Report 4380885-8 (Version None)
Quarter: 2004Q2

REPORT INFORMATION
  Report Type: 
  Country: None (occurrence: None)
  Receive Date: 20040616
  Receipt Date: 20040602
  Transmission Date: 20050107
  Serious: No
  Sender: FDA-Public Use
  Company Number: 2004GB01326

PATIENT
  Age: 61 Year
  Sex: Female

DRUGS (8)
  1. LISINOPRIL [Suspect]
     Indication: MYOCARDIAL INFARCTION
  2. METFORMIN HCL [Suspect]
     Indication: DIABETES MELLITUS
  3. IBUPROFEN [Suspect]
  4. ASPIRIN [Concomitant]
  5. ATENOLOL [Concomitant]
  6. CLOPIDOGREL BISULFATE [Concomitant]
  7. AMLODIPINE [Concomitant]
  8. NATEGLINIDE [Concomitant]

REACTIONS (5)
  - HAEMODIALYSIS [None]
  - HYPOTENSION [None]
  - LACTIC ACIDOSIS [None]
  - PANCREATITIS [None]
  - RENAL FAILURE ACUTE [None]
